FAERS Safety Report 6430403-5 (Version None)
Quarter: 2009Q4

REPORT INFORMATION
  Report Type: 
  Country: None (occurrence: None)
  Receive Date: 20091106
  Receipt Date: 20091026
  Transmission Date: 20100525
  Serious: Yes (Death, Life-Threatening, Hospitalization)
  Sender: FDA-Public Use
  Company Number: GB-PFIZER INC-2009280070

PATIENT
  Age: 79 Year
  Sex: Male
  Weight: 69 kg

DRUGS (2)
  1. SUTENT [Suspect]
     Indication: GASTROINTESTINAL STROMAL TUMOUR
     Dosage: 50 MG, 1X/DAY
     Route: 048
     Dates: start: 20090312, end: 20090627
  2. CIPROFLOXACIN HYDROCHLORIDE [Concomitant]
     Indication: SINUSITIS

REACTIONS (1)
  - DISSEMINATED INTRAVASCULAR COAGULATION [None]
